FAERS Safety Report 8303540-8 (Version None)
Quarter: 2012Q2

REPORT INFORMATION
  Report Type: 
  Country: None (occurrence: None)
  Receive Date: 20120423
  Receipt Date: 20120419
  Transmission Date: 20120825
  Serious: Yes (Other)
  Sender: FDA-Public Use
  Company Number: US-PFIZER INC-2012097946

PATIENT
  Sex: Male

DRUGS (3)
  1. CHANTIX [Suspect]
     Indication: SMOKING CESSATION THERAPY
     Dosage: 0.5 MG, 1X/DAY
     Route: 048
     Dates: start: 20120401, end: 20120401
  2. CHANTIX [Suspect]
     Dosage: UNK
     Route: 048
     Dates: start: 20120401
  3. HYDROCODONE [Concomitant]
     Dosage: UNK

REACTIONS (3)
  - SENSORY DISTURBANCE [None]
  - DISCOMFORT [None]
  - HYPOKINESIA [None]
